FAERS Safety Report 5190889-3 (Version None)
Quarter: 2006Q4

REPORT INFORMATION
  Report Type: 
  Country: None (occurrence: None)
  Receive Date: 20061222
  Receipt Date: 20060919
  Transmission Date: 20070319
  Serious: Yes (Hospitalization)
  Sender: FDA-Public Use
  Company Number: US-ELI_LILLY_AND_COMPANY-US200609006467

PATIENT
  Age: 35 Year
  Sex: Female
  Weight: 96.598 kg

DRUGS (1)
  1. ZYPREXA [Suspect]
     Indication: DEPRESSION
     Dosage: 5 MG, UNK
     Dates: start: 20040101, end: 20050101

REACTIONS (3)
  - CARDIAC DISORDER [None]
  - DIABETES MELLITUS [None]
  - POLYURIA [None]
